FAERS Safety Report 8533835-4 (Version None)
Quarter: 2012Q3

REPORT INFORMATION
  Report Type: 
  Country: None (occurrence: None)
  Receive Date: 20120705
  Receipt Date: 20120619
  Transmission Date: 20120928
  Serious: Yes (Hospitalization)
  Sender: FDA-Public Use
  Company Number: 2012PROUSA01371

PATIENT
  Age: 76 Year
  Sex: Male
  Weight: 76.6 kg

DRUGS (13)
  1. PROVENGE [Suspect]
     Indication: PROSTATE CANCER METASTATIC
     Dosage: 250 ML, SINGLE, INTRAVENOUS
     Route: 042
     Dates: start: 20120412, end: 20120412
  2. MEVACOR [Concomitant]
  3. ARICEPT [Concomitant]
  4. PRILOSEC [Concomitant]
  5. CASODEX [Concomitant]
  6. LECITHIN (LECITHIN) [Concomitant]
  7. ANTIVERT [Concomitant]
  8. LOPRESSOR [Concomitant]
  9. NEUTRA-PHOS (PHOSPHORUS) [Concomitant]
  10. ZOFRAN [Concomitant]
  11. ASPIRIN [Concomitant]
  12. ZANTAC [Concomitant]
  13. COUMADIN [Concomitant]

REACTIONS (5)
  - HYDRONEPHROSIS [None]
  - NAUSEA [None]
  - SEPSIS [None]
  - URINARY TRACT INFECTION ENTEROCOCCAL [None]
  - VOMITING [None]
